FAERS Safety Report 10688657 (Version 6)
Quarter: 2015Q1

REPORT INFORMATION
  Report Type: Spontaneous
  Country: CN (occurrence: CN)
  Receive Date: 20150102
  Receipt Date: 20150218
  Transmission Date: 20150720
  Serious: No
  Sender: FDA-Public Use
  Company Number: CN-009507513-1412CHN012937

PATIENT
  Age: 59 Year
  Sex: Female
  Weight: 60 kg

DRUGS (17)
  1. SHEN QI FU ZHENG ZHU SHE YE [Concomitant]
     Indication: HAEMATOCHEZIA
  2. POTASSIUM CHLORIDE. [Concomitant]
     Active Substance: POTASSIUM CHLORIDE
     Indication: ELECTROLYTE IMBALANCE
     Dosage: TOTAL DAILY DOSE 1 G, QD
     Route: 041
     Dates: start: 20141210, end: 20141211
  3. INSULIN [Concomitant]
     Active Substance: INSULIN NOS
     Indication: HYPOGLYCAEMIA
     Dosage: TOTAL DAILY DOSE 61 IU, QD
     Route: 041
     Dates: start: 20141210, end: 20141211
  4. LANSOPRAZOLE. [Concomitant]
     Active Substance: LANSOPRAZOLE
     Indication: PROPHYLAXIS
     Dosage: TOTAL DAILY DOSE 30 MG, BID
     Route: 041
     Dates: start: 20141209, end: 20141211
  5. UBENIMEX [Concomitant]
     Active Substance: UBENIMEX
     Indication: PROPHYLAXIS
     Dosage: 3 CAP, QD
     Route: 048
     Dates: start: 20141217
  6. MEGESTROL ACETATE. [Concomitant]
     Active Substance: MEGESTROL ACETATE
     Indication: PROPHYLAXIS
     Dosage: TOTAL DAILY DOSE 4 TAB, BID
     Route: 048
     Dates: start: 20141217
  7. TROPISETRON HYDROCHLORIDE [Concomitant]
     Active Substance: TROPISETRON HYDROCHLORIDE
     Indication: PROPHYLAXIS OF NAUSEA AND VOMITING
     Dosage: TOTAL DAILY DOSE 5 MG, BID
     Route: 042
     Dates: start: 20141209, end: 20141212
  8. TROPISETRON HYDROCHLORIDE [Concomitant]
     Active Substance: TROPISETRON HYDROCHLORIDE
     Dosage: TOTAL DAILY DOSE 5 MG, BID
     Route: 042
     Dates: start: 20141216, end: 20141217
  9. GLUTATHIONE [Concomitant]
     Active Substance: GLUTATHIONE
     Indication: PROPHYLAXIS
     Dosage: 1.2 G, QD
     Route: 041
     Dates: start: 20141216, end: 20141217
  10. APREPITANT. [Suspect]
     Active Substance: APREPITANT
     Dosage: 80 MG, DAY 2
     Route: 048
     Dates: start: 20141210, end: 20141210
  11. MATRINE [Concomitant]
     Indication: PROPHYLAXIS
     Dosage: TOTAL DAILY DOSE 12 ML/CC, QD
     Route: 041
     Dates: start: 20141209, end: 20141211
  12. LANSOPRAZOLE. [Concomitant]
     Active Substance: LANSOPRAZOLE
     Dosage: TOTAL DAILY DOSE 30 MG, BID
     Route: 041
     Dates: start: 20141216, end: 20141217
  13. APREPITANT. [Suspect]
     Active Substance: APREPITANT
     Indication: PROPHYLAXIS OF NAUSEA AND VOMITING
     Dosage: 125 MG, DAY 1
     Route: 048
     Dates: start: 20141209, end: 20141209
  14. APREPITANT. [Suspect]
     Active Substance: APREPITANT
     Dosage: 80 MG, DAY 3
     Route: 048
     Dates: start: 20141211, end: 20141211
  15. SHEN QI FU ZHENG ZHU SHE YE [Concomitant]
     Indication: IMMUNISATION
     Dosage: TOTAL DAILY DOSE 250 ML/CC, QD
     Route: 041
     Dates: start: 20141209, end: 20141217
  16. DEXAMETHASONE SODIUM PHOSPHATE. [Concomitant]
     Active Substance: DEXAMETHASONE SODIUM PHOSPHATE
     Indication: PROPHYLAXIS OF NAUSEA AND VOMITING
     Dosage: TOTAL DAILY DOSE 5 MG, QD
     Route: 041
     Dates: start: 20141209, end: 20141211
  17. DECA-DURABOLIN [Concomitant]
     Active Substance: NANDROLONE DECANOATE
     Dosage: TOTAL DAILY DOSE 90 MG, ONCE
     Route: 041
     Dates: start: 20141205, end: 20141205

REACTIONS (3)
  - Dizziness [Recovered/Resolved]
  - Haematochezia [Recovered/Resolved]
  - White blood cell count decreased [Recovering/Resolving]

NARRATIVE: CASE EVENT DATE: 20141213
